FAERS Safety Report 14146093 (Version 2)
Quarter: 2017Q4

REPORT INFORMATION
  Report Type: Spontaneous
  Country: DE (occurrence: DE)
  Receive Date: 20171031
  Receipt Date: 20171109
  Transmission Date: 20180321
  Serious: Yes (Hospitalization, Other)
  Sender: FDA-Public Use
  Company Number: DE-009507513-1710DEU014078

PATIENT
  Age: 71 Year
  Sex: Male
  Weight: 102 kg

DRUGS (1)
  1. KEYTRUDA [Suspect]
     Active Substance: PEMBROLIZUMAB
     Indication: METASTATIC BRONCHIAL CARCINOMA
     Dosage: 200 MG, Q3W
     Dates: start: 20170512, end: 20171012

REACTIONS (9)
  - Pneumonia [Recovered/Resolved]
  - Transaminases increased [Recovered/Resolved]
  - Lung infiltration [Unknown]
  - Faecaloma [Recovered/Resolved]
  - Escherichia bacteraemia [Recovered/Resolved]
  - Autoimmune hepatitis [Recovered/Resolved]
  - Cholangitis [Unknown]
  - Malignant neoplasm progression [Unknown]
  - Transaminases increased [Recovered/Resolved]

NARRATIVE: CASE EVENT DATE: 2017
